FAERS Safety Report 8918121 (Version 1)
Quarter: 2012Q4

REPORT INFORMATION
  Report Type: 
  Country: US (occurrence: US)
  Receive Date: 20121120
  Receipt Date: 20121120
  Transmission Date: 20130627
  Serious: Yes (Other)
  Sender: FDA-Public Use
  Company Number: PHHY2012US104989

PATIENT
  Age: 81 Year
  Sex: Male

DRUGS (1)
  1. BICALUTAMIDE [Suspect]
     Indication: PROSTATE CANCER METASTATIC

REACTIONS (8)
  - Coagulopathy [Recovering/Resolving]
  - Hepatotoxicity [Recovering/Resolving]
  - Decreased appetite [Recovering/Resolving]
  - Fatigue [Recovering/Resolving]
  - Jaundice [Recovering/Resolving]
  - Chromaturia [Recovering/Resolving]
  - Ocular icterus [Recovering/Resolving]
  - Hyperbilirubinaemia [Recovering/Resolving]
